FAERS Safety Report 4849785-0 (Version None)
Quarter: 2005Q4

REPORT INFORMATION
  Report Type: 
  Country: None (occurrence: None)
  Receive Date: 20051115
  Receipt Date: 20050805
  Transmission Date: 20060501
  Serious: No
  Sender: FDA-Public Use
  Company Number: S05-USA-03826-01

PATIENT
  Age: 82 Year
  Sex: Female

DRUGS (9)
  1. NAMENDA [Suspect]
     Indication: AMNESIA
     Dosage: 10 MG BID PO
     Route: 048
     Dates: start: 20050101
  2. NAMENDA [Suspect]
     Indication: AMNESIA
     Dosage: 5 MG QD PO
     Route: 048
     Dates: start: 20050201, end: 20050101
  3. NAMENDA [Suspect]
     Indication: AMNESIA
     Dosage: 5 MG BID PO
     Route: 048
     Dates: start: 20050101, end: 20050101
  4. NAMENDA [Suspect]
     Indication: AMNESIA
     Dosage: 15 MG QD PO
     Route: 048
     Dates: start: 20050101, end: 20050101
  5. BUPROPION [Concomitant]
  6. ZYPREXA [Concomitant]
  7. LORAZEPAM [Concomitant]
  8. SINGULAIR [Concomitant]
  9. VITAMINS [Concomitant]

REACTIONS (4)
  - ASTHENOPIA [None]
  - FATIGUE [None]
  - FEELING ABNORMAL [None]
  - SENSORY DISTURBANCE [None]
